FAERS Safety Report 20819679 (Version 3)
Quarter: 2022Q2

REPORT INFORMATION
  Report Type: Report from Study
  Country: CA (occurrence: CA)
  Receive Date: 20220512
  Receipt Date: 20220608
  Transmission Date: 20220720
  Serious: Yes (Hospitalization, Other)
  Sender: FDA-Public Use
  Company Number: CA-TAKEDA-2022TUS031379

PATIENT
  Age: 45 Year
  Sex: Male

DRUGS (5)
  1. VEDOLIZUMAB [Suspect]
     Active Substance: VEDOLIZUMAB
     Indication: Colitis ulcerative
     Dosage: 300 MILLIGRAM
     Route: 042
     Dates: start: 20181224
  2. VEDOLIZUMAB [Suspect]
     Active Substance: VEDOLIZUMAB
     Dosage: 300 MILLIGRAM, Q4WEEKS
     Route: 042
     Dates: start: 20201120
  3. VEDOLIZUMAB [Suspect]
     Active Substance: VEDOLIZUMAB
     Dosage: 300 MILLIGRAM, Q4WEEKS
     Route: 042
  4. VEDOLIZUMAB [Suspect]
     Active Substance: VEDOLIZUMAB
     Dosage: 300 MILLIGRAM, Q4WEEKS
     Route: 042
  5. PREDNISONE [Concomitant]
     Active Substance: PREDNISONE
     Dosage: UNK

REACTIONS (7)
  - Surgery [Unknown]
  - COVID-19 [Unknown]
  - Medical induction of coma [Unknown]
  - Asthma [Unknown]
  - Asthenia [Unknown]
  - Muscle atrophy [Unknown]
  - Off label use [Unknown]

NARRATIVE: CASE EVENT DATE: 20201120
